FAERS Safety Report 9013749 (Version 1)
Quarter: 2012Q4

REPORT INFORMATION
  Report Type: Spontaneous
  Country: US (occurrence: None)
  Receive Date: 20121231
  Receipt Date: 20121231
  Transmission Date: 20130627
  Serious: Yes (Other)
  Sender: FDA-Public Use
  Company Number: 1533226

PATIENT
  Age: 65 Year
  Sex: Female

DRUGS (1)
  1. EPIRUBICIN HYDROCHLORIDE [Suspect]
     Indication: BREAST CANCER FEMALE NOS
     Route: 042

REACTIONS (4)
  - Respiratory distress [None]
  - Blood pressure increased [None]
  - Headache [None]
  - Erythema [None]
